FAERS Safety Report 20827679 (Version 2)
Quarter: 2022Q2

REPORT INFORMATION
  Report Type: Report from Study
  Country: US (occurrence: US)
  Receive Date: 20220513
  Receipt Date: 20220520
  Transmission Date: 20220720
  Serious: Yes (Hospitalization, Other)
  Sender: FDA-Public Use
  Company Number: US-OTSUKA-2022_027104

PATIENT
  Sex: Male
  Weight: 76.1 kg

DRUGS (1)
  1. CEDAZURIDINE\DECITABINE [Suspect]
     Active Substance: CEDAZURIDINE\DECITABINE
     Indication: Myelodysplastic syndrome
     Dosage: 135 MG (35-100 MG), QD ON DAYS 1-5 OF EACH 28 DAYS CYCLE
     Route: 048
     Dates: start: 20220422

REACTIONS (6)
  - Chest pain [Unknown]
  - Full blood count abnormal [Unknown]
  - Neutrophil count decreased [Unknown]
  - White blood cell count decreased [Unknown]
  - Chest discomfort [Unknown]
  - Asthenia [Unknown]
